FAERS Safety Report 17028206 (Version 1)
Quarter: 2019Q4

REPORT INFORMATION
  Report Type: Spontaneous
  Country: CA (occurrence: CA)
  Receive Date: 20191113
  Receipt Date: 20191113
  Transmission Date: 20200122
  Serious: Yes (Other)
  Sender: FDA-Public Use
  Company Number: CA-TEVA-2019-CA-1135695

PATIENT
  Age: 61 Year
  Sex: Female

DRUGS (11)
  1. INFLIXIMAB [Concomitant]
     Active Substance: INFLIXIMAB
     Route: 042
  2. OMEPRAZOLE MAGNESIUM. [Suspect]
     Active Substance: OMEPRAZOLE MAGNESIUM
     Indication: PRODUCT USED FOR UNKNOWN INDICATION
     Route: 048
  3. CIPRO [Concomitant]
     Active Substance: CIPROFLOXACIN HYDROCHLORIDE
     Indication: ABSCESS
     Route: 065
  4. INFLIXIMAB [Concomitant]
     Active Substance: INFLIXIMAB
     Route: 042
  5. IMURAN [Concomitant]
     Active Substance: AZATHIOPRINE
  6. INFLIXIMAB [Concomitant]
     Active Substance: INFLIXIMAB
     Route: 042
  7. PENTASA [Concomitant]
     Active Substance: MESALAMINE
  8. TEVA-RISEDRONATE [Concomitant]
     Active Substance: RISEDRONATE SODIUM
     Indication: BONE DENSITY DECREASED
     Route: 065
  9. INFLIXIMAB [Concomitant]
     Active Substance: INFLIXIMAB
     Indication: CROHN^S DISEASE
     Route: 042
  10. SOLU-MEDROL [Concomitant]
     Active Substance: METHYLPREDNISOLONE SODIUM SUCCINATE
     Route: 042
  11. SYNTHROID [Concomitant]
     Active Substance: LEVOTHYROXINE SODIUM
     Indication: HYPOTHYROIDISM
     Route: 065

REACTIONS (7)
  - Abscess limb [Unknown]
  - Diarrhoea [Unknown]
  - Hyperplastic cholecystopathy [Unknown]
  - Abdominal lymphadenopathy [Unknown]
  - Drug ineffective [Unknown]
  - Renal impairment [Unknown]
  - Vascular pseudoaneurysm [Unknown]
